FAERS Safety Report 8604365-6 (Version None)
Quarter: 2012Q3

REPORT INFORMATION
  Report Type: 
  Country: None (occurrence: None)
  Receive Date: 20120820
  Receipt Date: 20120809
  Transmission Date: 20120928
  Serious: Yes (Other)
  Sender: FDA-Public Use
  Company Number: US-BAYER-2012-082181

PATIENT
  Age: 44 Year
  Sex: Female

DRUGS (5)
  1. HYDROCODONE BITARTRATE AND ACETAMINOPHEN [Concomitant]
     Dosage: 5-325
     Dates: start: 20090928, end: 20091118
  2. YASMIN [Suspect]
  3. NEXIUM [Concomitant]
     Dosage: 40 MG, UNK
     Dates: start: 20070122, end: 20100915
  4. DROSPIRENONE AND ETHINYL ESTRADIOL [Suspect]
  5. OXYCODONE HCL AND ACETAMINOPHEN [Concomitant]
     Dosage: 5-325
     Dates: start: 20090916, end: 20090921

REACTIONS (1)
  - DEEP VEIN THROMBOSIS [None]
